FAERS Safety Report 7359791-2 (Version None)
Quarter: 2011Q1

REPORT INFORMATION
  Report Type: 
  Country: None (occurrence: None)
  Receive Date: 20110317
  Receipt Date: 20110225
  Transmission Date: 20110831
  Serious: Yes (Hospitalization)
  Sender: FDA-Public Use
  Company Number: US-BAYER-201027725NA

PATIENT
  Sex: Female
  Weight: 72.2 kg

DRUGS (4)
  1. ANAPROX [Concomitant]
     Indication: COLPOSCOPY
  2. AMPICILLIN [Concomitant]
     Indication: CELLULITIS
     Dosage: UNK
     Dates: start: 19930614
  3. MACROBID [Concomitant]
     Indication: URINARY TRACT INFECTION
  4. YAZ [Suspect]
     Indication: ORAL CONTRACEPTION
     Route: 048
     Dates: start: 20080601, end: 20080710

REACTIONS (2)
  - PULMONARY EMBOLISM [None]
  - DEEP VEIN THROMBOSIS [None]
